FAERS Safety Report 5952380-3 (Version None)
Quarter: 2008Q4

REPORT INFORMATION
  Report Type: 
  Country: None (occurrence: None)
  Receive Date: 20081113
  Receipt Date: 20081103
  Transmission Date: 20090506
  Serious: Yes (Life-Threatening, Hospitalization, Disabling)
  Sender: FDA-Public Use
  Company Number: US-SANOFI-SYNTHELABO-A03200801089

PATIENT
  Sex: Male
  Weight: 68 kg

DRUGS (22)
  1. AMBIEN [Suspect]
     Indication: INSOMNIA
     Dosage: UNK
     Route: 048
     Dates: start: 20040101
  2. TAGAMET [Concomitant]
     Indication: DRUG USE FOR UNKNOWN INDICATION
     Route: 048
  3. VALTREX [Concomitant]
     Indication: DRUG USE FOR UNKNOWN INDICATION
     Route: 048
  4. CELEBREX [Concomitant]
     Indication: DRUG USE FOR UNKNOWN INDICATION
     Route: 048
  5. CYMBALTA [Concomitant]
     Indication: DRUG USE FOR UNKNOWN INDICATION
     Route: 048
     Dates: start: 20050101
  6. WELLBUTRIN [Concomitant]
     Indication: DRUG USE FOR UNKNOWN INDICATION
     Route: 048
     Dates: start: 19990101
  7. NOVOCAIN [Suspect]
     Indication: ENDODONTIC PROCEDURE
     Dosage: UNK
     Route: 065
     Dates: start: 20060921
  8. DARVOCET [Suspect]
     Indication: BACK DISORDER
     Dosage: UNK
     Route: 065
  9. ALLEGRA [Concomitant]
     Route: 048
  10. ALBUTEROL [Concomitant]
     Dosage: 2 PUFFS EVERY FOUR HOURS AS NEEDED
     Route: 065
  11. FLONASE [Concomitant]
     Dosage: UNK
     Route: 065
  12. AMBIEN CR [Suspect]
     Route: 048
     Dates: start: 20060101
  13. PSEUDOEPHEDRINE HCL [Concomitant]
     Indication: DRUG USE FOR UNKNOWN INDICATION
     Dosage: TAKE 1 TABLET AT 8 AM
     Route: 048
  14. TYLENOL [Concomitant]
     Indication: DRUG USE FOR UNKNOWN INDICATION
     Route: 048
  15. TYLENOL [Concomitant]
     Dosage: 1000 MG AT 8 AM
     Route: 048
  16. FLEXERIL [Concomitant]
     Indication: DRUG USE FOR UNKNOWN INDICATION
     Dosage: TAKE 10 MG EVERY 8 HOURS AS NEEDED FOR BACK SPASM- NO ALCOHOL, NO DRIVING
     Route: 048
  17. LORTAB [Concomitant]
     Indication: DRUG USE FOR UNKNOWN INDICATION
     Dosage: TAKE ONE TO TWO TABLETS EVERY SIX HOURS
     Route: 048
  18. LORTAB [Concomitant]
     Route: 048
     Dates: start: 20060804, end: 20060804
  19. LORTAB [Concomitant]
     Dosage: TAKE 1/2 TO 2 TABLETS EVERY 8 HOURS FOR SEVERE PAIN- NO ALCOHOL, NO DRIVING
     Route: 048
  20. ULTRAM [Concomitant]
     Indication: DRUG USE FOR UNKNOWN INDICATION
     Dosage: TAKE ONE TO TWO TABLETS EVERY SIX HOURS
     Route: 048
  21. VENTOLIN [Concomitant]
     Indication: DRUG USE FOR UNKNOWN INDICATION
     Route: 048
  22. OXYCONTIN [Concomitant]
     Indication: DRUG USE FOR UNKNOWN INDICATION
     Route: 048

REACTIONS (55)
  - ABASIA [None]
  - ABDOMINAL DISCOMFORT [None]
  - ACUTE RESPIRATORY DISTRESS SYNDROME [None]
  - AMNESIA [None]
  - ANOXIC ENCEPHALOPATHY [None]
  - ANXIETY DISORDER [None]
  - ASTHENIA [None]
  - BACK PAIN [None]
  - BLADDER DISORDER [None]
  - BRAIN CONTUSION [None]
  - CARDIAC ARREST [None]
  - CAUDA EQUINA SYNDROME [None]
  - CHEST PAIN [None]
  - COGNITIVE DISORDER [None]
  - CONTUSION [None]
  - DELIRIUM [None]
  - DELUSION [None]
  - DISTURBANCE IN ATTENTION [None]
  - DROWNING [None]
  - DYSPNOEA [None]
  - FALL [None]
  - GAIT DISTURBANCE [None]
  - HALLUCINATION [None]
  - HYPERHIDROSIS [None]
  - HYPOTHERMIA [None]
  - HYPOXIA [None]
  - IMPAIRED DRIVING ABILITY [None]
  - INTERVERTEBRAL DISC PROTRUSION [None]
  - INTERVERTEBRAL DISC SPACE NARROWING [None]
  - INTESTINAL FUNCTIONAL DISORDER [None]
  - IRRITABILITY [None]
  - JOINT INJURY [None]
  - LOSS OF CONSCIOUSNESS [None]
  - LUNG DISORDER [None]
  - OEDEMA [None]
  - OSTEOMYELITIS [None]
  - PAIN IN EXTREMITY [None]
  - PERONEAL NERVE PALSY [None]
  - PERSONALITY CHANGE [None]
  - PNEUMONIA ASPIRATION [None]
  - PNEUMOTHORAX [None]
  - POST CONCUSSION SYNDROME [None]
  - POST-TRAUMATIC STRESS DISORDER [None]
  - PUPIL FIXED [None]
  - RESPIRATORY ARREST [None]
  - RESPIRATORY FAILURE [None]
  - ROAD TRAFFIC ACCIDENT [None]
  - SEPSIS [None]
  - SINUS TACHYCARDIA [None]
  - SOMNAMBULISM [None]
  - SUICIDAL IDEATION [None]
  - THINKING ABNORMAL [None]
  - TRAUMATIC BRAIN INJURY [None]
  - URINARY RETENTION [None]
  - VENTRICULAR TACHYCARDIA [None]
